FAERS Safety Report 18518098 (Version 1)
Quarter: 2020Q4

REPORT INFORMATION
  Report Type: Spontaneous
  Country: US (occurrence: US)
  Receive Date: 20201118
  Receipt Date: 20201118
  Transmission Date: 20210114
  Serious: Yes (Death, Other)
  Sender: FDA-Public Use
  Company Number: US-PFIZER INC-2020234746

PATIENT
  Age: 85 Year
  Sex: Male

DRUGS (1)
  1. METOCLOPRAMIDE HCL [Suspect]
     Active Substance: METOCLOPRAMIDE HYDROCHLORIDE
     Indication: ABDOMINAL DISCOMFORT
     Dosage: UNK
     Dates: start: 20200223, end: 20200223

REACTIONS (6)
  - Gastrointestinal haemorrhage [Fatal]
  - Gastric cancer [Fatal]
  - Blood pressure decreased [Unknown]
  - Haematemesis [Fatal]
  - Contraindicated product administered [Unknown]
  - Acute respiratory distress syndrome [Fatal]

NARRATIVE: CASE EVENT DATE: 20200223
